FAERS Safety Report 7002006-5 (Version None)
Quarter: 2010Q3

REPORT INFORMATION
  Report Type: 
  Country: None (occurrence: None)
  Receive Date: 20100920
  Receipt Date: 20100916
  Transmission Date: 20110219
  Serious: Yes (Hospitalization)
  Sender: FDA-Public Use
  Company Number: B0674871A

PATIENT
  Age: 39 Year
  Sex: Male

DRUGS (1)
  1. AUGMENTIN '125' [Suspect]
     Indication: UPPER RESPIRATORY TRACT INFECTION
     Dosage: 1UNIT SINGLE DOSE
     Route: 048
     Dates: start: 20100129, end: 20100129

REACTIONS (8)
  - ANAPHYLACTIC SHOCK [None]
  - DYSPNOEA [None]
  - LARYNGEAL OEDEMA [None]
  - MALAISE [None]
  - PHARYNGEAL OEDEMA [None]
  - RASH GENERALISED [None]
  - SELF-MEDICATION [None]
  - TACHYCARDIA [None]
